FAERS Safety Report 7080059-6 (Version None)
Quarter: 2010Q4

REPORT INFORMATION
  Report Type: 
  Country: None (occurrence: None)
  Receive Date: 20101102
  Receipt Date: 20100920
  Transmission Date: 20110411
  Serious: No
  Sender: FDA-Public Use
  Company Number: US-ABBOTT-10P-163-0673010-00

PATIENT

DRUGS (2)
  1. BIAXIN [Suspect]
     Indication: HELICOBACTER INFECTION
     Dates: start: 20100401
  2. FLAGYL [Suspect]
     Indication: HELICOBACTER INFECTION

REACTIONS (1)
  - DYSPNOEA [None]
